FAERS Safety Report 5214512-4 (Version None)
Quarter: 2007Q1

REPORT INFORMATION
  Report Type: 
  Country: None (occurrence: None)
  Receive Date: 20070116
  Receipt Date: 20070102
  Transmission Date: 20070707
  Serious: Yes (Hospitalization)
  Sender: FDA-Public Use
  Company Number: ESWYE008103JAN07

PATIENT
  Age: 13 Year
  Sex: Female

DRUGS (3)
  1. VENLAFAXINE HCL [Suspect]
     Indication: DEPRESSION
     Dosage: 75 MG 2X PER 1 DAY ORAL
     Route: 048
     Dates: start: 20061104
  2. SEROQUEL [Concomitant]
  3. NOCTAMID (LORMETAZEPAM) [Concomitant]

REACTIONS (1)
  - DRUG SCREEN FALSE POSITIVE [None]
